FAERS Safety Report 12248393 (Version 1)
Quarter: 2016Q2

REPORT INFORMATION
  Report Type: Report from Study
  Country: JP (occurrence: JP)
  Receive Date: 20160408
  Receipt Date: 20160408
  Transmission Date: 20160815
  Serious: Yes (Death, Hospitalization)
  Sender: FDA-Public Use
  Company Number: JP-BAXTER-2010BH002853

PATIENT
  Age: 51 Year
  Sex: Male
  Weight: 60 kg

DRUGS (8)
  1. HUMAN COAGULATION FACTOR VIII (RDNA) [Suspect]
     Active Substance: ANTIHEMOPHILIC FACTOR, HUMAN RECOMBINANT
     Indication: FACTOR VIII DEFICIENCY
     Dosage: 1000IU (INTERNATIONAL UNIT)AS NEEDED
     Route: 042
     Dates: start: 20070306, end: 20070729
  2. HUMAN COAGULATION FACTOR VIII (RDNA) [Suspect]
     Active Substance: ANTIHEMOPHILIC FACTOR, HUMAN RECOMBINANT
     Dosage: 1000IU (INTERNATIONAL UNIT)AS NEEDED
     Route: 042
     Dates: start: 20080307, end: 20080906
  3. EVAMYL [Concomitant]
     Active Substance: LORMETAZEPAM
     Indication: INSOMNIA
     Dosage: 1MILLIGRAM1X A DAY
     Route: 048
  4. HUMAN COAGULATION FACTOR VIII (RDNA) [Suspect]
     Active Substance: ANTIHEMOPHILIC FACTOR, HUMAN RECOMBINANT
     Dosage: 1000IU (INTERNATIONAL UNIT)AS NEEDED
     Route: 042
     Dates: start: 20070730, end: 20080306
  5. HUMAN COAGULATION FACTOR VIII (RDNA) [Suspect]
     Active Substance: ANTIHEMOPHILIC FACTOR, HUMAN RECOMBINANT
     Dosage: 1000IU (INTERNATIONAL UNIT)AS NEEDED
     Route: 042
     Dates: start: 20080907, end: 20090306
  6. CALONAL [Concomitant]
     Active Substance: ACETAMINOPHEN
     Indication: HAEMOPHILIC ARTHROPATHY
     Dosage: 400MILLIGRAM1X A DAY
     Route: 048
  7. SELBEX [Concomitant]
     Active Substance: TEPRENONE
     Indication: CHRONIC GASTRITIS
     Dosage: 50MILLIGRAM3X A DAY
     Route: 048
  8. SUMIFERON [Concomitant]
     Active Substance: INTERFERON ALFA-N1
     Indication: CHRONIC HEPATITIS C
     Dosage: 3000000IU (INTERNATIONAL UNIT)1X A DAY

REACTIONS (1)
  - Hepatocellular carcinoma [Fatal]

NARRATIVE: CASE EVENT DATE: 20081114
